FAERS Safety Report 20435357 (Version 1)
Quarter: 2022Q1

REPORT INFORMATION
  Report Type: Report from Study
  Country: AT (occurrence: AT)
  Receive Date: 20220206
  Receipt Date: 20220206
  Transmission Date: 20220423
  Serious: Yes (Hospitalization)
  Sender: FDA-Public Use
  Company Number: AT-ABBVIE-22K-009-4265892-00

PATIENT
  Sex: Female

DRUGS (1)
  1. HUMIRA [Suspect]
     Active Substance: ADALIMUMAB
     Indication: Crohn^s disease
     Route: 058
     Dates: start: 202103, end: 202111

REACTIONS (3)
  - Hypoaesthesia [Unknown]
  - Speech disorder [Unknown]
  - Erythema [Unknown]

NARRATIVE: CASE EVENT DATE: 20210101
